FAERS Safety Report 23518906 (Version 1)
Quarter: 2024Q1

REPORT INFORMATION
  Report Type: Spontaneous
  Country: US (occurrence: None)
  Receive Date: 20240213
  Receipt Date: 20240213
  Transmission Date: 20240410
  Serious: Yes (Life-Threatening, Hospitalization)
  Sender: FDA-Public Use
  Company Number: None

PATIENT
  Age: 77 Year
  Sex: Male
  Weight: 74.25 kg

DRUGS (1)
  1. TRELEGY ELLIPTA [Suspect]
     Active Substance: FLUTICASONE FUROATE\UMECLIDINIUM BROMIDE\VILANTEROL TRIFENATATE
     Indication: Bronchitis
     Dosage: OTHER QUANTITY : 1 INHALATION(S);?
     Route: 055

REACTIONS (3)
  - Pneumonia [None]
  - Atrial fibrillation [None]
  - Acute kidney injury [None]

NARRATIVE: CASE EVENT DATE: 20240128
